FAERS Safety Report 11317047 (Version 6)
Quarter: 2016Q1

REPORT INFORMATION
  Report Type: Spontaneous
  Country: US (occurrence: US)
  Receive Date: 20150728
  Receipt Date: 20160226
  Transmission Date: 20160525
  Serious: Yes (Death, Hospitalization)
  Sender: FDA-Public Use
  Company Number: US-PFIZER INC-2015245059

PATIENT
  Age: 82 Year
  Sex: Male
  Weight: 83.44 kg

DRUGS (6)
  1. AMBIEN [Concomitant]
     Active Substance: ZOLPIDEM TARTRATE
     Dosage: UNK
     Dates: end: 20150628
  2. SUTENT [Suspect]
     Active Substance: SUNITINIB MALATE
     Indication: METASTATIC RENAL CELL CARCINOMA
     Dosage: 50 MG, CYCLIC (2 WEEKS ON/1 WEEK OFF)
     Dates: start: 20150607, end: 20150628
  3. SUTENT [Suspect]
     Active Substance: SUNITINIB MALATE
     Dosage: 50 MG, CYCLIC (2 WEEKS ON/1 WEEK OFF)
     Dates: start: 20151012, end: 20151018
  4. SUTENT [Suspect]
     Active Substance: SUNITINIB MALATE
     Dosage: 50 MG, CYCLIC (2 WEEKS ON/1 WEEK OFF)
     Dates: start: 20150701, end: 20151002
  5. GABAPENTIN. [Concomitant]
     Active Substance: GABAPENTIN
     Dosage: UNK
     Dates: start: 20150615, end: 20150628
  6. COUMADIN [Concomitant]
     Active Substance: WARFARIN SODIUM
     Dosage: UNK
     Dates: end: 20151101

REACTIONS (18)
  - Confusional state [Recovering/Resolving]
  - Platelet count decreased [Unknown]
  - Stomatitis [Recovered/Resolved]
  - Yellow skin [Recovered/Resolved]
  - Jaw disorder [Unknown]
  - Decreased appetite [Recovering/Resolving]
  - Pyrexia [Unknown]
  - Death [Fatal]
  - Nausea [Recovered/Resolved]
  - Hallucination [Recovering/Resolving]
  - White blood cell count decreased [Unknown]
  - Metastatic renal cell carcinoma [Unknown]
  - Asthenia [Unknown]
  - Hiccups [Unknown]
  - Pain [Recovering/Resolving]
  - Epistaxis [Recovered/Resolved]
  - Dysgeusia [Recovered/Resolved]
  - Disease progression [Unknown]

NARRATIVE: CASE EVENT DATE: 20151104
